FAERS Safety Report 9521919 (Version 1)
Quarter: 2013Q3

REPORT INFORMATION
  Report Type: Spontaneous
  Country: US (occurrence: US)
  Receive Date: 20130913
  Receipt Date: 20130913
  Transmission Date: 20140515
  Serious: Yes (Hospitalization)
  Sender: FDA-Public Use
  Company Number: US-ABBOTT-13P-163-1143498-00

PATIENT
  Age: 39 Year
  Sex: Male
  Weight: 81.72 kg

DRUGS (6)
  1. HUMIRA [Suspect]
     Indication: PSORIATIC ARTHROPATHY
  2. NICOTINE [Concomitant]
     Indication: NICOTINE DEPENDENCE
  3. VITAMINS NOS [Concomitant]
     Indication: VITAMIN SUPPLEMENTATION
  4. MYLANTA [Concomitant]
     Indication: ABDOMINAL DISCOMFORT
  5. ZOFRAN [Concomitant]
     Indication: NAUSEA
  6. MELATONIN [Concomitant]
     Indication: INSOMNIA

REACTIONS (2)
  - Drug dependence [Unknown]
  - Device malfunction [Unknown]
